FAERS Safety Report 14855951 (Version 8)
Quarter: 2018Q3

REPORT INFORMATION
  Report Type: Report from Study
  Country: US (occurrence: US)
  Receive Date: 20180507
  Receipt Date: 20180918
  Transmission Date: 20181010
  Serious: Yes (Hospitalization)
  Sender: FDA-Public Use
  Company Number: US-ACTELION-A-US2018-165309

PATIENT
  Age: 63 Year
  Sex: Female
  Weight: 108.39 kg

DRUGS (20)
  1. UPTRAVI [Suspect]
     Active Substance: SELEXIPAG
     Dosage: 1400 MCG, BID
     Route: 048
  2. OXYGEN. [Concomitant]
     Active Substance: OXYGEN
     Dosage: 4?5
  3. K?TAB [Concomitant]
     Active Substance: POTASSIUM CHLORIDE
  4. ADEMPAS [Concomitant]
     Active Substance: RIOCIGUAT
  5. TRAMADOL. [Concomitant]
     Active Substance: TRAMADOL
  6. SPIRONOLACTONE. [Concomitant]
     Active Substance: SPIRONOLACTONE
  7. ASPIRIN 81 [Concomitant]
     Active Substance: ASPIRIN
  8. WARFARIN [Concomitant]
     Active Substance: WARFARIN
  9. JANUVIA [Concomitant]
     Active Substance: SITAGLIPTIN PHOSPHATE
  10. STOOL SOFTENER (DOCUSATE) [Concomitant]
     Active Substance: DOCUSATE
  11. OPSUMIT [Suspect]
     Active Substance: MACITENTAN
     Indication: PULMONARY ARTERIAL HYPERTENSION
     Dosage: 10 MG, QD
     Route: 048
     Dates: start: 20160129
  12. UPTRAVI [Suspect]
     Active Substance: SELEXIPAG
     Indication: PULMONARY ARTERIAL HYPERTENSION
     Dosage: 800 MCG, BID
     Route: 048
  13. OXYGEN. [Concomitant]
     Active Substance: OXYGEN
     Dosage: 5 L, UNK
  14. FUROSEMIDE. [Concomitant]
     Active Substance: FUROSEMIDE
  15. UPTRAVI [Suspect]
     Active Substance: SELEXIPAG
     Dosage: 1200 MCG, BID
     Route: 048
  16. JAKAFI [Concomitant]
     Active Substance: RUXOLITINIB
     Dosage: UNK, QD
  17. VITAMIN D3 [Concomitant]
     Active Substance: CHOLECALCIFEROL
  18. PENTOXIFYLLIN [Concomitant]
     Active Substance: PENTOXIFYLLINE
  19. OMEPRAZOLE. [Concomitant]
     Active Substance: OMEPRAZOLE
  20. JAKAFI [Concomitant]
     Active Substance: RUXOLITINIB
     Dosage: UNK, BID

REACTIONS (18)
  - Cough [Unknown]
  - Productive cough [Unknown]
  - Nasal congestion [Unknown]
  - Malaise [Unknown]
  - Nasopharyngitis [Unknown]
  - Abdominal discomfort [Unknown]
  - Head discomfort [Unknown]
  - Dyspnoea [Unknown]
  - Oxygen consumption increased [Unknown]
  - Pneumonia [Unknown]
  - Influenza [Unknown]
  - Rhinorrhoea [Unknown]
  - Feeling cold [Unknown]
  - Asthenia [Unknown]
  - Cholecystectomy [Recovered/Resolved]
  - Urinary tract infection [Recovered/Resolved]
  - Headache [Unknown]
  - Rash [Unknown]

NARRATIVE: CASE EVENT DATE: 201804
